FAERS Safety Report 9414467 (Version 2)
Quarter: 2013Q3

REPORT INFORMATION
  Report Type: Spontaneous
  Country: FR (occurrence: None)
  Receive Date: 20130717
  Receipt Date: 20130801
  Transmission Date: 20140515
  Serious: Yes (Hospitalization)
  Sender: FDA-Public Use
  Company Number: VAL_02642_2013

PATIENT
  Age: 44 Year
  Sex: Female

DRUGS (1)
  1. PARLODEL [Suspect]
     Indication: HYPERPROLACTINAEMIA
     Dates: start: 20130626, end: 20130626

REACTIONS (4)
  - Vomiting [None]
  - Loss of consciousness [None]
  - Incorrect dose administered [None]
  - Drug prescribing error [None]
